FAERS Safety Report 21298887 (Version 1)
Quarter: 2022Q3

REPORT INFORMATION
  Report Type: Spontaneous
  Country: US (occurrence: None)
  Receive Date: 20220905
  Receipt Date: 20220905
  Transmission Date: 20221026
  Serious: Yes (Other)
  Sender: FDA-Public Use
  Company Number: None

PATIENT
  Sex: Female

DRUGS (8)
  1. IBRANCE [Suspect]
     Active Substance: PALBOCICLIB
  2. AMLODIPINE [Concomitant]
     Active Substance: AMLODIPINE BESYLATE
  3. ginseng 100 mg cap [Concomitant]
  4. norco 10 mg tab [Concomitant]
  5. inderal la 120mg tab [Concomitant]
  6. LETROZOLE [Concomitant]
     Active Substance: LETROZOLE
  7. propranolol 10 mg tab [Concomitant]
  8. XANAX [Concomitant]
     Active Substance: ALPRAZOLAM

REACTIONS (1)
  - Disease progression [None]
